FAERS Safety Report 13564902 (Version 2)
Quarter: 2017Q2

REPORT INFORMATION
  Report Type: Report from Study
  Country: US (occurrence: US)
  Receive Date: 20170519
  Receipt Date: 20170614
  Transmission Date: 20170830
  Serious: Yes (Other)
  Sender: FDA-Public Use
  Company Number: US-BRISTOL-MYERS SQUIBB COMPANY-BMS-2017-041533

PATIENT
  Sex: Male

DRUGS (1)
  1. DASATINIB [Suspect]
     Active Substance: DASATINIB
     Indication: MYELODYSPLASTIC SYNDROME
     Dosage: 100 MG, QD
     Route: 048
     Dates: start: 20170124

REACTIONS (8)
  - Pain in extremity [Unknown]
  - Chronic sinusitis [Unknown]
  - Dry eye [Unknown]
  - Product use in unapproved indication [Unknown]
  - Musculoskeletal chest pain [Unknown]
  - Fatigue [Unknown]
  - Pain [Unknown]
  - Rhinoplasty [Unknown]
